FAERS Safety Report 5011853-0 (Version None)
Quarter: 2006Q2

REPORT INFORMATION
  Report Type: 
  Country: None (occurrence: None)
  Receive Date: 20060524
  Receipt Date: 20060524
  Transmission Date: 20061013
  Serious: Yes (Hospitalization)
  Sender: FDA-Public Use
  Company Number: None

PATIENT
  Age: 64 Year
  Sex: Male
  Weight: 78.9259 kg

DRUGS (10)
  1. PHENERGAN [Suspect]
     Indication: PROPHYLAXIS OF NAUSEA AND VOMITING
     Dosage: 12.5MG X 1
     Dates: start: 20060202
  2. METOPROLOL [Concomitant]
  3. ISOSORBIDE [Concomitant]
  4. SIMVASTATIN [Concomitant]
  5. LISINOPRIL [Concomitant]
  6. RANITIDINE [Concomitant]
  7. INSULIN [Concomitant]
  8. ROSIGLITAZONE [Concomitant]
  9. ASPIRIN [Concomitant]
  10. ETODOLAC [Concomitant]

REACTIONS (3)
  - AGGRESSION [None]
  - AGITATION [None]
  - CONFUSIONAL STATE [None]
